FAERS Safety Report 18694991 (Version 1)
Quarter: 2021Q1

REPORT INFORMATION
  Report Type: Spontaneous
  Country: US (occurrence: US)
  Receive Date: 20210101
  Receipt Date: 20210101
  Transmission Date: 20210419
  Serious: Yes (Hospitalization)
  Sender: FDA-Public Use
  Company Number: None

PATIENT
  Age: 63 Year
  Sex: Female

DRUGS (5)
  1. CHINESE FOOD [Suspect]
     Active Substance: UNSPECIFIED INGREDIENT
  2. GLATIRAMER [Suspect]
     Active Substance: GLATIRAMER
     Indication: MULTIPLE SCLEROSIS
     Dosage: ?          OTHER FREQUENCY:3 TIMES PER WEEK;?
     Route: 058
     Dates: start: 20200623
  3. LEVOTHYROXIN [Concomitant]
     Active Substance: LEVOTHYROXINE
  4. DOXYCYCL HYC [Concomitant]
  5. SCALLOPS [Suspect]
     Active Substance: SEA SCALLOP

REACTIONS (2)
  - Food allergy [None]
  - Feeling hot [None]
